FAERS Safety Report 9071949 (Version 1)
Quarter: 2013Q1

REPORT INFORMATION
  Report Type: Report from Study
  Country: US (occurrence: US)
  Receive Date: 20130129
  Receipt Date: 20130129
  Transmission Date: 20140127
  Serious: No
  Sender: FDA-Public Use
  Company Number: US-ABBOTT-12P-163-0928090-00

PATIENT
  Age: 16 None
  Sex: Female
  Weight: 50.39 kg

DRUGS (3)
  1. HUMIRA 40 MG/0.8 ML PEN [Suspect]
     Indication: CROHN^S DISEASE
     Dates: start: 201203, end: 201203
  2. IMURAN [Suspect]
     Indication: CROHN^S DISEASE
     Dates: end: 201204
  3. HEPATITIS B VACCINE [Suspect]
     Indication: IMMUNISATION
     Dates: start: 201204, end: 201204

REACTIONS (5)
  - Off label use [Not Recovered/Not Resolved]
  - Myalgia [Not Recovered/Not Resolved]
  - Hyperaesthesia [Not Recovered/Not Resolved]
  - Fatigue [Not Recovered/Not Resolved]
  - Pyrexia [Not Recovered/Not Resolved]
